FAERS Safety Report 14517196 (Version 1)
Quarter: 2018Q1

REPORT INFORMATION
  Report Type: Report from Study
  Country: JP (occurrence: JP)
  Receive Date: 20180212
  Receipt Date: 20180212
  Transmission Date: 20180509
  Serious: Yes (Hospitalization, Other)
  Sender: FDA-Public Use
  Company Number: JP-AMGEN-JPNNI2018019098

PATIENT
  Age: 88 Year
  Sex: Female

DRUGS (39)
  1. CARFILZOMIB [Suspect]
     Active Substance: CARFILZOMIB
     Dosage: 50 MG/M2, UNK
     Route: 041
     Dates: start: 20170725, end: 20170725
  2. CARFILZOMIB [Suspect]
     Active Substance: CARFILZOMIB
     Dosage: 50 MG/M2, UNK
     Route: 041
     Dates: start: 20171003, end: 20171003
  3. CARFILZOMIB [Suspect]
     Active Substance: CARFILZOMIB
     Dosage: 50 MG/M2, UNK
     Route: 041
     Dates: start: 20171031, end: 20171031
  4. DEXAMETHASONE. [Suspect]
     Active Substance: DEXAMETHASONE
     Dosage: 12 MG, UNK
     Route: 065
     Dates: start: 20170725, end: 20170725
  5. DEXAMETHASONE. [Suspect]
     Active Substance: DEXAMETHASONE
     Dosage: 12 MG, UNK
     Route: 065
     Dates: start: 20170905, end: 20170905
  6. DEXAMETHASONE. [Suspect]
     Active Substance: DEXAMETHASONE
     Dosage: 12 MG, UNK
     Route: 065
     Dates: start: 20171003, end: 20171003
  7. CELECOX [Suspect]
     Active Substance: CELECOXIB
     Indication: PRODUCT USED FOR UNKNOWN INDICATION
     Dosage: UNK
     Route: 048
  8. CARFILZOMIB [Suspect]
     Active Substance: CARFILZOMIB
     Dosage: 50 MG/M2, UNK
     Route: 041
     Dates: start: 20170801, end: 20170801
  9. CARFILZOMIB [Suspect]
     Active Substance: CARFILZOMIB
     Dosage: 50 MG/M2, UNK
     Route: 041
     Dates: start: 20171121, end: 20171121
  10. DEXAMETHASONE. [Suspect]
     Active Substance: DEXAMETHASONE
     Dosage: 12 MG, UNK
     Route: 065
     Dates: start: 20170627, end: 20170628
  11. DEXAMETHASONE. [Suspect]
     Active Substance: DEXAMETHASONE
     Dosage: 12 MG, UNK
     Route: 065
     Dates: start: 20170801, end: 20170801
  12. CARFILZOMIB [Suspect]
     Active Substance: CARFILZOMIB
     Dosage: 50 MG/M2, UNK
     Route: 041
     Dates: start: 20170829, end: 20170829
  13. CARFILZOMIB [Suspect]
     Active Substance: CARFILZOMIB
     Dosage: 50 MG/M2, UNK
     Route: 041
     Dates: start: 20170905, end: 20170905
  14. CARFILZOMIB [Suspect]
     Active Substance: CARFILZOMIB
     Dosage: 50 MG/M2, UNK
     Route: 041
     Dates: start: 20171017, end: 20171017
  15. CARFILZOMIB [Suspect]
     Active Substance: CARFILZOMIB
     Dosage: 50 MG/M2, UNK
     Route: 041
     Dates: start: 20171114, end: 20171114
  16. DEXAMETHASONE. [Suspect]
     Active Substance: DEXAMETHASONE
     Dosage: 12 MG, UNK
     Route: 065
     Dates: start: 20170822, end: 20170822
  17. DEXAMETHASONE. [Suspect]
     Active Substance: DEXAMETHASONE
     Dosage: 12 MG, UNK
     Route: 065
     Dates: start: 20170829, end: 20170829
  18. DEXAMETHASONE. [Suspect]
     Active Substance: DEXAMETHASONE
     Dosage: 12 MG, UNK
     Route: 065
     Dates: start: 20170919, end: 20170919
  19. DEXAMETHASONE. [Suspect]
     Active Substance: DEXAMETHASONE
     Dosage: 12 MG, UNK
     Route: 065
     Dates: start: 20171031, end: 20171031
  20. CARFILZOMIB [Suspect]
     Active Substance: CARFILZOMIB
     Dosage: 25.2 MG/M2, UNK
     Route: 041
     Dates: start: 20170627, end: 20170628
  21. GOSHAJINKIGAN [Suspect]
     Active Substance: HERBALS
     Indication: PRODUCT USED FOR UNKNOWN INDICATION
     Dosage: UNK
     Route: 065
  22. CARFILZOMIB [Suspect]
     Active Substance: CARFILZOMIB
     Dosage: 25.2 MG/M2, UNK
     Route: 041
     Dates: start: 20170704, end: 20170705
  23. CARFILZOMIB [Suspect]
     Active Substance: CARFILZOMIB
     Dosage: 50 MG/M2, UNK
     Route: 041
     Dates: start: 20170822, end: 20170822
  24. CARFILZOMIB [Suspect]
     Active Substance: CARFILZOMIB
     Dosage: 50 MG/M2, UNK
     Route: 041
     Dates: start: 20170919, end: 20170919
  25. CARFILZOMIB [Suspect]
     Active Substance: CARFILZOMIB
     Dosage: 50 MG/M2, UNK
     Route: 041
     Dates: start: 20171024, end: 20171024
  26. DEXAMETHASONE. [Suspect]
     Active Substance: DEXAMETHASONE
     Dosage: 12 MG, UNK
     Route: 065
     Dates: start: 20170704, end: 20170705
  27. DEXAMETHASONE. [Suspect]
     Active Substance: DEXAMETHASONE
     Dosage: 12 MG, UNK
     Route: 065
     Dates: start: 20171121, end: 20171121
  28. CARFILZOMIB [Suspect]
     Active Substance: CARFILZOMIB
     Indication: PLASMA CELL MYELOMA
     Dosage: 16.8 MG/M2, UNK
     Route: 041
     Dates: start: 20170620, end: 20170621
  29. CARFILZOMIB [Suspect]
     Active Substance: CARFILZOMIB
     Dosage: 50 MG/M2, UNK
     Route: 041
     Dates: start: 20170718, end: 20170718
  30. DEXAMETHASONE. [Suspect]
     Active Substance: DEXAMETHASONE
     Dosage: 12 MG, UNK
     Route: 065
     Dates: start: 20170718, end: 20170718
  31. DEXAMETHASONE. [Suspect]
     Active Substance: DEXAMETHASONE
     Dosage: 12 MG, UNK
     Route: 065
     Dates: start: 20171017, end: 20171017
  32. DEXAMETHASONE. [Suspect]
     Active Substance: DEXAMETHASONE
     Dosage: 12 MG, UNK
     Route: 065
     Dates: start: 20171114, end: 20171114
  33. DEXAMETHASONE. [Suspect]
     Active Substance: DEXAMETHASONE
     Dosage: 12 MG, UNK
     Route: 065
     Dates: start: 20171128, end: 20171128
  34. CARFILZOMIB [Suspect]
     Active Substance: CARFILZOMIB
     Dosage: 50 MG/M2, UNK
     Route: 041
     Dates: start: 20170926, end: 20170926
  35. CARFILZOMIB [Suspect]
     Active Substance: CARFILZOMIB
     Dosage: 50 MG/M2, UNK
     Route: 041
     Dates: start: 20171128, end: 20171128
  36. DEXAMETHASONE. [Suspect]
     Active Substance: DEXAMETHASONE
     Dosage: 12 MG, UNK
     Route: 065
     Dates: start: 20171024, end: 20171024
  37. DEXAMETHASONE. [Suspect]
     Active Substance: DEXAMETHASONE
     Indication: PLASMA CELL MYELOMA
     Dosage: 12 MG, UNK
     Route: 065
     Dates: start: 20170620, end: 20170621
  38. DEXAMETHASONE. [Suspect]
     Active Substance: DEXAMETHASONE
     Dosage: 12 MG, UNK
     Route: 065
     Dates: start: 20170926, end: 20170926
  39. FEBURIC [Suspect]
     Active Substance: FEBUXOSTAT
     Indication: PRODUCT USED FOR UNKNOWN INDICATION
     Dosage: UNK
     Route: 048

REACTIONS (5)
  - Rash [Recovered/Resolved]
  - Platelet count decreased [Recovered/Resolved]
  - Lymphocyte count decreased [Recovered/Resolved]
  - White blood cell count decreased [Recovered/Resolved]
  - Enteritis infectious [Recovered/Resolved]

NARRATIVE: CASE EVENT DATE: 20170623
